FAERS Safety Report 6127467-5 (Version None)
Quarter: 2009Q1

REPORT INFORMATION
  Report Type: 
  Country: None (occurrence: None)
  Receive Date: 20090323
  Receipt Date: 20090316
  Transmission Date: 20090719
  Serious: Yes (Other)
  Sender: FDA-Public Use
  Company Number: US-BAYER-200915589NA

PATIENT
  Age: 50 Year
  Sex: Female

DRUGS (3)
  1. BETASERON [Suspect]
     Indication: RELAPSING-REMITTING MULTIPLE SCLEROSIS
     Dosage: TOTAL DAILY DOSE: 8 MIU
     Route: 058
     Dates: start: 20090109
  2. BETASERON [Suspect]
     Route: 058
     Dates: start: 20020319, end: 20080301
  3. ALEVE [Concomitant]

REACTIONS (4)
  - ABASIA [None]
  - CHILLS [None]
  - DYSSTASIA [None]
  - MOBILITY DECREASED [None]
